FAERS Safety Report 14861432 (Version 1)
Quarter: 2018Q2

REPORT INFORMATION
  Report Type: Spontaneous
  Country: ZA (occurrence: ZA)
  Receive Date: 20180508
  Receipt Date: 20180508
  Transmission Date: 20180711
  Serious: Yes (Hospitalization)
  Sender: FDA-Public Use
  Company Number: ZA-PFIZER INC-2018183575

PATIENT
  Age: 60 Year
  Sex: Female

DRUGS (4)
  1. ASPAVOR [Suspect]
     Active Substance: ATORVASTATIN
     Dosage: 10 MG, UNK
  2. VERAPAMIL [Suspect]
     Active Substance: VERAPAMIL HYDROCHLORIDE
     Dosage: 240 MG, UNK
  3. PURICOS [Suspect]
     Active Substance: ALLOPURINOL
     Dosage: 300 MG, UNK
  4. THEOPHYLLINE [Suspect]
     Active Substance: THEOPHYLLINE ANHYDROUS
     Dosage: 200 MG, UNK

REACTIONS (2)
  - Respiratory disorder [Unknown]
  - Renal failure [Unknown]
